FAERS Safety Report 9018160 (Version 1)
Quarter: 2013Q1

REPORT INFORMATION
  Report Type: Spontaneous
  Country: DK (occurrence: DK)
  Receive Date: 20130117
  Receipt Date: 20130117
  Transmission Date: 20140127
  Serious: Yes (Other)
  Sender: FDA-Public Use
  Company Number: PHHY2012DK084520

PATIENT
  Age: 81 Year
  Sex: Female

DRUGS (3)
  1. ACLASTA [Suspect]
     Dosage: 5 MG/ 100 ML YEARLY
     Route: 042
     Dates: start: 20120816
  2. MODIODAL [Concomitant]
     Indication: FATIGUE
     Dosage: 100 MG
     Route: 048
  3. ASASANTIN [Concomitant]
     Indication: THROMBOSIS PROPHYLAXIS

REACTIONS (7)
  - Syncope [Recovered/Resolved]
  - Palpitations [Recovered/Resolved]
  - Bone pain [Recovered/Resolved]
  - Malaise [Recovered/Resolved]
  - Nausea [Recovered/Resolved]
  - Diarrhoea [Recovered/Resolved]
  - Dizziness [Recovered/Resolved]
